FAERS Safety Report 7689132-2 (Version None)
Quarter: 2011Q3

REPORT INFORMATION
  Report Type: 
  Country: None (occurrence: None)
  Receive Date: 20110817
  Receipt Date: 20110815
  Transmission Date: 20111222
  Serious: Yes (Life-Threatening, Hospitalization)
  Sender: FDA-Public Use
  Company Number: JP-MERCK-1107USA02102

PATIENT
  Age: 83 Year
  Sex: Female
  Weight: 62 kg

DRUGS (9)
  1. HOKUNALIN [Concomitant]
     Indication: ASTHMA
     Route: 065
     Dates: start: 20010928
  2. THEO-DUR [Concomitant]
     Indication: ASTHMA
     Route: 048
     Dates: start: 20000929
  3. AZELASTINE HCL [Concomitant]
     Indication: RHINITIS ALLERGIC
     Route: 048
     Dates: start: 20010216
  4. ZITHROMAX [Concomitant]
     Indication: INFECTION
     Route: 048
     Dates: start: 20110625, end: 20110627
  5. PRIMAXIN [Suspect]
     Indication: INFECTION
     Route: 030
     Dates: start: 20110625, end: 20110706
  6. ZANTAC [Concomitant]
     Indication: GASTROOESOPHAGEAL REFLUX DISEASE
     Route: 048
     Dates: start: 20020313
  7. AMLODIPINE BESYLATE [Concomitant]
     Indication: HYPERTENSION
     Route: 048
     Dates: start: 19970212
  8. NEOMALLERMIN TR [Concomitant]
     Indication: RHINITIS ALLERGIC
     Route: 048
     Dates: start: 20050412
  9. HYDROCORTISONE SODIUM SUCCINATE [Concomitant]
     Indication: ASTHMA
     Route: 041
     Dates: start: 20110625, end: 20110625

REACTIONS (2)
  - ASTHMA [None]
  - ANAPHYLACTIC SHOCK [None]
